FAERS Safety Report 17805502 (Version 1)
Quarter: 2020Q2

REPORT INFORMATION
  Report Type: Spontaneous
  Country: US (occurrence: US)
  Receive Date: 20200519
  Receipt Date: 20200519
  Transmission Date: 20200714
  Serious: No
  Sender: FDA-Public Use
  Company Number: US-LEXICON PHARMACEUTICALS, INC-20-1606-00367

PATIENT
  Age: 77 Year
  Sex: Male

DRUGS (13)
  1. VITAMIN B1 [Concomitant]
     Active Substance: THIAMINE HYDROCHLORIDE
  2. VITAMIN B12 [Concomitant]
     Active Substance: CYANOCOBALAMIN
  3. MENS 50 + VITAMIN [Concomitant]
  4. PANCRELIPASE. [Concomitant]
     Active Substance: PANCRELIPASE
  5. FISH OIL [Concomitant]
     Active Substance: FISH OIL
  6. GINSENG [Concomitant]
     Active Substance: ASIAN GINSENG
  7. VITAMIN D [Concomitant]
     Active Substance: VITAMIN D NOS
  8. XERMELO [Suspect]
     Active Substance: TELOTRISTAT ETHYL
     Indication: CARCINOID TUMOUR
     Dates: start: 20171020
  9. VITAMIN B6 [Concomitant]
     Active Substance: PYRIDOXINE HYDROCHLORIDE
  10. PYRIDOXINE [Concomitant]
     Active Substance: PYRIDOXINE
  11. ELIQUIS [Concomitant]
     Active Substance: APIXABAN
  12. METOPROLOL. [Concomitant]
     Active Substance: METOPROLOL
  13. CREON [Concomitant]
     Active Substance: PANCRELIPASE AMYLASE\PANCRELIPASE LIPASE\PANCRELIPASE PROTEASE

REACTIONS (1)
  - Gastroenteritis viral [Unknown]
